FAERS Safety Report 5748231-2 (Version None)
Quarter: 2008Q2

REPORT INFORMATION
  Report Type: 
  Country: None (occurrence: None)
  Receive Date: 20080523
  Receipt Date: 20080513
  Transmission Date: 20081010
  Serious: Yes (Other)
  Sender: FDA-Public Use
  Company Number: US-PFIZER INC-2007095298

PATIENT
  Sex: Female
  Weight: 83.5 kg

DRUGS (8)
  1. LIPITOR [Suspect]
     Indication: BLOOD CHOLESTEROL INCREASED
     Route: 048
     Dates: start: 20000217, end: 20000522
  2. LIPITOR [Suspect]
     Indication: HYPERLIPIDAEMIA
  3. TOPROL-XL [Concomitant]
  4. GLIPIZIDE [Concomitant]
  5. INDAPAMIDE [Concomitant]
  6. LANTUS [Concomitant]
  7. METFORMIN HCL [Concomitant]
  8. GLUCOTROL [Concomitant]

REACTIONS (4)
  - ABASIA [None]
  - MUSCULAR WEAKNESS [None]
  - MYALGIA [None]
  - PERIPHERAL VASCULAR DISORDER [None]
